FAERS Safety Report 19091836 (Version 1)
Quarter: 2021Q2

REPORT INFORMATION
  Report Type: Spontaneous
  Country: US (occurrence: US)
  Receive Date: 20210402
  Receipt Date: 20210402
  Transmission Date: 20210717
  Serious: No
  Sender: FDA-Public Use
  Company Number: None

PATIENT
  Age: 75 Year
  Sex: Male
  Weight: 78.3 kg

DRUGS (10)
  1. HYDROCHLOROTHIAZIDE. [Concomitant]
     Active Substance: HYDROCHLOROTHIAZIDE
  2. VITAMIN D [Concomitant]
     Active Substance: VITAMIN D NOS
  3. LEVOTHRYROXINE [Concomitant]
  4. ALLEGRA [Concomitant]
     Active Substance: FEXOFENADINE HYDROCHLORIDE
  5. IRBESARTAN. [Concomitant]
     Active Substance: IRBESARTAN
  6. NASACORT [Concomitant]
     Active Substance: TRIAMCINOLONE ACETONIDE
  7. VITAMIN C [Concomitant]
     Active Substance: ASCORBIC ACID
  8. MULTIVITAMINS [Concomitant]
     Active Substance: VITAMINS
  9. AIMOVIG [Suspect]
     Active Substance: ERENUMAB-AOOE
     Indication: MIGRAINE
     Dosage: ?          QUANTITY:1 INJECTION(S);OTHER FREQUENCY:ONCE PER MONTH;?
     Route: 058
     Dates: start: 20201002, end: 20210402
  10. PEPCID [Concomitant]
     Active Substance: FAMOTIDINE

REACTIONS (4)
  - Constipation [None]
  - Diverticulum [None]
  - Diverticulitis [None]
  - Flatulence [None]

NARRATIVE: CASE EVENT DATE: 20210325
